FAERS Safety Report 13814356 (Version 1)
Quarter: 2017Q3

REPORT INFORMATION
  Report Type: Spontaneous
  Country: US (occurrence: US)
  Receive Date: 20170731
  Receipt Date: 20170731
  Transmission Date: 20171127
  Serious: No
  Sender: FDA-Public Use
  Company Number: US-BAYER-2017-143145

PATIENT
  Sex: Female

DRUGS (4)
  1. FINACEA [Suspect]
     Active Substance: AZELAIC ACID
     Indication: SCAR
  2. FINACEA [Suspect]
     Active Substance: AZELAIC ACID
     Indication: CHLOASMA
  3. FINACEA [Suspect]
     Active Substance: AZELAIC ACID
     Indication: SKIN DISCOLOURATION
  4. FINACEA [Suspect]
     Active Substance: AZELAIC ACID
     Indication: ACNE
     Dosage: UNK
     Dates: start: 201703, end: 201706

REACTIONS (2)
  - Product use in unapproved indication [None]
  - Therapeutic response unexpected [None]
